FAERS Safety Report 4570385-4 (Version None)
Quarter: 2005Q1

REPORT INFORMATION
  Report Type: 
  Country: None (occurrence: None)
  Receive Date: 20050126
  Receipt Date: 20050126
  Transmission Date: 20050727
  Serious: Yes (Life-Threatening, Hospitalization)
  Sender: FDA-Public Use
  Company Number: None

PATIENT
  Age: 58 Year
  Sex: Male
  Weight: 58.514 kg

DRUGS (1)
  1. AMPHOTERICIN B [Suspect]
     Indication: FEBRILE NEUTROPENIA
     Dosage: 200 MG INFUSION IV
     Route: 042
     Dates: start: 20041014

REACTIONS (2)
  - INFUSION RELATED REACTION [None]
  - RESPIRATORY DISTRESS [None]
